FAERS Safety Report 19475923 (Version 1)
Quarter: 2021Q2

REPORT INFORMATION
  Report Type: Spontaneous
  Country: NL (occurrence: NL)
  Receive Date: 20210630
  Receipt Date: 20210630
  Transmission Date: 20210717
  Serious: Yes (Other)
  Sender: FDA-Public Use
  Company Number: NL-TEVA-2021-NL-1926444

PATIENT
  Sex: Female
  Weight: 50 kg

DRUGS (2)
  1. MORFINE INJVLST 10MG/ML / BRAND NAME NOT SPECIFIED [Suspect]
     Active Substance: MORPHINE
     Indication: PAIN
     Dosage: 10 MG THERAPY END DATE :ASKU
     Dates: start: 2016
  2. PARACETAMOL TABLET  500MG / BRAND NAME NOT SPECIFIED [Concomitant]
     Dosage: 1000 MGTHERAPY START DATE :THERAPY END DATE:ASKU

REACTIONS (2)
  - Confusional state [Recovered/Resolved]
  - Aggression [Recovered/Resolved]
